FAERS Safety Report 7999011-9 (Version None)
Quarter: 2011Q4

REPORT INFORMATION
  Report Type: 
  Country: None (occurrence: None)
  Receive Date: 20111221
  Receipt Date: 20111216
  Transmission Date: 20120403
  Serious: Yes (Life-Threatening, Hospitalization)
  Sender: FDA-Public Use
  Company Number: GB-TEVA-313718ISR

PATIENT
  Age: 68 Year
  Sex: Male

DRUGS (9)
  1. TRAMADOL HCL [Concomitant]
  2. LANSOPRAZOLE [Concomitant]
  3. AMLODIPINE [Suspect]
     Indication: HYPERTENSION
     Route: 048
     Dates: start: 20111114
  4. PRAVASTATIN [Concomitant]
  5. ASPIRIN [Concomitant]
  6. DIETHYL-STILBESTROL TAB [Suspect]
     Route: 048
     Dates: start: 20110601
  7. BISOPROLOL FUMARATE [Concomitant]
  8. OMACOR [Concomitant]
  9. RAMIPRIL [Concomitant]

REACTIONS (4)
  - PAIN IN EXTREMITY [None]
  - EMBOLISM [None]
  - MYALGIA [None]
  - BACK PAIN [None]
